FAERS Safety Report 7782526-6 (Version None)
Quarter: 2011Q3

REPORT INFORMATION
  Report Type: 
  Country: None (occurrence: None)
  Receive Date: 20110928
  Receipt Date: 20110915
  Transmission Date: 20111222
  Serious: Yes (Death, Other)
  Sender: FDA-Public Use
  Company Number: CA-ELI_LILLY_AND_COMPANY-CA201109003962

PATIENT
  Sex: Female

DRUGS (2)
  1. ZYPREXA [Suspect]
     Indication: DEMENTIA
  2. ARICEPT [Concomitant]

REACTIONS (4)
  - INTRACRANIAL ANEURYSM [None]
  - COMA [None]
  - OFF LABEL USE [None]
  - NEURODEGENERATIVE DISORDER [None]
